FAERS Safety Report 10862897 (Version 1)
Quarter: 2015Q1

REPORT INFORMATION
  Report Type: Report from Study
  Country: TR (occurrence: TR)
  Receive Date: 20150223
  Receipt Date: 20150223
  Transmission Date: 20150721
  Serious: Yes (Hospitalization)
  Sender: FDA-Public Use
  Company Number: TR-EMD SERONO-7336176

PATIENT
  Age: 14 Year
  Sex: Female
  Weight: 36 kg

DRUGS (2)
  1. VITAMIN D                          /00107901/ [Concomitant]
     Active Substance: ERGOCALCIFEROL
     Indication: VITAMIN D DECREASED
  2. SAIZEN [Suspect]
     Active Substance: SOMATROPIN
     Indication: GROWTH HORMONE DEFICIENCY
     Dates: start: 201108, end: 20150120

REACTIONS (2)
  - Spinal deformity [Unknown]
  - Kyphoscoliosis [Recovering/Resolving]

NARRATIVE: CASE EVENT DATE: 201408
